FAERS Safety Report 9322749 (Version 2)
Quarter: 2013Q3

REPORT INFORMATION
  Report Type: Spontaneous
  Country: US (occurrence: US)
  Receive Date: 20130601
  Receipt Date: 20130910
  Transmission Date: 20140515
  Serious: Yes (Hospitalization, Other)
  Sender: FDA-Public Use
  Company Number: US-ASTRAZENECA-2013SE38543

PATIENT
  Age: 53 Year
  Sex: Female

DRUGS (26)
  1. NEXIUM [Suspect]
     Indication: GASTROOESOPHAGEAL REFLUX DISEASE
     Dosage: ONCE A DAY
     Route: 048
  2. NEXIUM [Suspect]
     Indication: GASTRIC DISORDER
     Dosage: ONCE A DAY
     Route: 048
  3. NEXIUM [Suspect]
     Indication: GASTROOESOPHAGEAL REFLUX DISEASE
     Dosage: GENERIC
     Route: 048
  4. NEXIUM [Suspect]
     Indication: GASTRIC DISORDER
     Dosage: GENERIC
     Route: 048
  5. PRILOSEC [Suspect]
     Indication: GASTRIC DISORDER
     Route: 048
     Dates: start: 2010
  6. ZANTAC [Concomitant]
  7. PEPCID [Concomitant]
  8. TAZAC [Concomitant]
  9. TUMS [Concomitant]
  10. MILK OF MAGNESIA [Concomitant]
  11. PEPTO BISMOL [Concomitant]
     Indication: MALAISE
  12. ROLAIDS [Concomitant]
  13. MUCNIEX [Concomitant]
  14. POTASSIUM [Concomitant]
  15. HIMALIN [Concomitant]
  16. PLARIN [Concomitant]
  17. SINGULAR [Concomitant]
  18. NASSONEX [Concomitant]
  19. MSIR [Concomitant]
     Dosage: 15 MG TO 60 MG
  20. SCONTIM [Concomitant]
  21. PROZAC [Concomitant]
  22. XANAX [Concomitant]
  23. TRAMADOL HCL [Concomitant]
  24. LOSARTAN POTASSIUM [Concomitant]
  25. JACIX [Concomitant]
  26. LYRICA [Concomitant]

REACTIONS (18)
  - Cerebrovascular accident [Unknown]
  - Convulsion [Unknown]
  - Myocardial infarction [Unknown]
  - Osteoporosis [Unknown]
  - Bone disorder [Unknown]
  - Rib fracture [Unknown]
  - Foot fracture [Unknown]
  - Hand fracture [Unknown]
  - Emotional distress [Unknown]
  - Anorexia nervosa [Unknown]
  - Arterial disorder [Unknown]
  - Arthritis [Unknown]
  - Glaucoma [Unknown]
  - Vitamin D deficiency [Unknown]
  - Diabetes mellitus [Unknown]
  - Abdominal discomfort [Unknown]
  - Malaise [Unknown]
  - Depression [Unknown]
